FAERS Safety Report 21580543 (Version 1)
Quarter: 2022Q4

REPORT INFORMATION
  Report Type: Spontaneous
  Country: IN (occurrence: IN)
  Receive Date: 20221110
  Receipt Date: 20221110
  Transmission Date: 20230112
  Serious: Yes (Hospitalization)
  Sender: FDA-Public Use
  Company Number: IN-STRIDES ARCOLAB LIMITED-2022SP014880

PATIENT
  Age: 52 Year
  Sex: Female

DRUGS (5)
  1. TACROLIMUS [Suspect]
     Active Substance: TACROLIMUS
     Indication: Renal transplant
     Dosage: UNK (INITIAL DOSE NOT STATED)
     Route: 048
  2. TACROLIMUS [Suspect]
     Active Substance: TACROLIMUS
     Dosage: 2.5 MILLIGRAM, BID
     Route: 048
  3. TACROLIMUS [Suspect]
     Active Substance: TACROLIMUS
     Dosage: UNK (DOSE ADJUSTED BASED ON TROUGH LEVEL)
     Route: 048
  4. PREDNISOLONE [Concomitant]
     Active Substance: PREDNISOLONE
     Indication: Renal transplant
     Dosage: 20 MILLIGRAM PER DAY
     Route: 065
  5. MYCOPHENOLIC ACID [Concomitant]
     Active Substance: MYCOPHENOLIC ACID
     Indication: Renal transplant
     Dosage: 720 MILLIGRAM, BID (ENTERIC-COATED)
     Route: 065

REACTIONS (4)
  - Congestive cardiomyopathy [Recovered/Resolved]
  - Coronary artery disease [Recovered/Resolved]
  - Pleural effusion [Recovered/Resolved]
  - Cardiac failure [Recovered/Resolved]
